FAERS Safety Report 7935152-X (Version None)
Quarter: 2011Q4

REPORT INFORMATION
  Report Type: 
  Country: None (occurrence: None)
  Receive Date: 20111122
  Receipt Date: 20111115
  Transmission Date: 20120403
  Serious: Yes (Death, Other)
  Sender: FDA-Public Use
  Company Number: US-AMGEN-USASP2011053267

PATIENT
  Sex: Male

DRUGS (3)
  1. NPLATE [Suspect]
     Indication: IDIOPATHIC THROMBOCYTOPENIC PURPURA
     Dosage: 90 MUG, UNK
     Dates: start: 20100809, end: 20110601
  2. IMMUNE GLOBULIN NOS [Concomitant]
     Indication: IDIOPATHIC THROMBOCYTOPENIC PURPURA
  3. CORTICOSTEROIDS [Concomitant]
     Indication: IDIOPATHIC THROMBOCYTOPENIC PURPURA

REACTIONS (2)
  - THROMBOCYTOPENIA [None]
  - CARDIAC DEATH [None]
